FAERS Safety Report 18260399 (Version 1)
Quarter: 2020Q3

REPORT INFORMATION
  Report Type: Spontaneous
  Country: DE (occurrence: DE)
  Receive Date: 20200914
  Receipt Date: 20200914
  Transmission Date: 20201103
  Serious: Yes (Hospitalization)
  Sender: FDA-Public Use
  Company Number: DE-ROCHE-2675898

PATIENT
  Age: 19 Year
  Sex: Male

DRUGS (14)
  1. COTRIM?CT [Concomitant]
     Active Substance: SULFAMETHOXAZOLE\TRIMETHOPRIM
     Dosage: 800|160 MG / WOCHE, 1X MO MI FR
     Route: 048
  2. LEVOTHYROXINNATRIUM [Concomitant]
     Dosage: 0.5?0?0?0
     Route: 048
  3. ONDANSETRON [Concomitant]
     Active Substance: ONDANSETRON
     Dosage: 1?0?1?0
     Route: 048
  4. PANTOPRAZOL [Concomitant]
     Active Substance: PANTOPRAZOLE SODIUM
     Dosage: 1?0?0?0
     Route: 048
  5. RITUXIMAB. [Suspect]
     Active Substance: RITUXIMAB
     Indication: PRODUCT USED FOR UNKNOWN INDICATION
     Route: 065
     Dates: start: 20200629
  6. VINCRISTIN [Suspect]
     Active Substance: VINCRISTINE
     Indication: PRODUCT USED FOR UNKNOWN INDICATION
     Route: 065
     Dates: start: 20200629
  7. PREDNISOLON [Concomitant]
     Active Substance: PREDNISOLONE
     Dosage: 1?0.5?0?0
     Route: 048
  8. DOXORUBICIN [Suspect]
     Active Substance: DOXORUBICIN
     Indication: PRODUCT USED FOR UNKNOWN INDICATION
     Route: 065
     Dates: start: 20200629
  9. CYCLOPHOSPHAMID [Suspect]
     Active Substance: CYCLOPHOSPHAMIDE
     Indication: PRODUCT USED FOR UNKNOWN INDICATION
     Route: 065
     Dates: start: 20200629
  10. METOPROLOL. [Concomitant]
     Active Substance: METOPROLOL
     Dosage: 1?0?1?0
     Route: 048
  11. MCP [Concomitant]
     Active Substance: METOCLOPRAMIDE HYDROCHLORIDE
     Dosage: 1?1?1?0
     Route: 048
  12. NALOXONE;TILIDINE [Concomitant]
     Active Substance: NALOXONE HYDROCHLORIDE\TILIDINE HYDROCHLORIDE
     Dosage: 4|50 MG, 1?0?0?0
     Route: 048
  13. PREDNISOLON [Concomitant]
     Active Substance: PREDNISOLONE
     Dates: start: 20200629
  14. ALLOPURINOL. [Concomitant]
     Active Substance: ALLOPURINOL
     Dosage: 1?0?0?0
     Route: 048

REACTIONS (5)
  - Localised infection [Recovering/Resolving]
  - Pericardial effusion [Unknown]
  - Chest pain [Recovering/Resolving]
  - Pericarditis [Unknown]
  - Musculoskeletal pain [Recovering/Resolving]
